FAERS Safety Report 8314055-5 (Version None)
Quarter: 2012Q2

REPORT INFORMATION
  Report Type: 
  Country: None (occurrence: None)
  Receive Date: 20120426
  Receipt Date: 20120419
  Transmission Date: 20120825
  Serious: Yes (Other)
  Sender: FDA-Public Use
  Company Number: US-AMGEN-USASP2011049961

PATIENT
  Age: 58 Year
  Sex: Female
  Weight: 82.54 kg

DRUGS (7)
  1. LYRICA [Concomitant]
     Indication: PAIN
     Dosage: 75 MG, QD
     Route: 048
     Dates: start: 20071031
  2. SOMA [Concomitant]
     Indication: MUSCLE RELAXANT THERAPY
     Dosage: 350 MG, PRN
     Route: 048
     Dates: start: 20080221
  3. NORCO [Concomitant]
     Indication: PAIN
     Dosage: UNK UNK, PRN
     Route: 048
     Dates: start: 20100505
  4. ENBREL [Suspect]
     Indication: RHEUMATOID ARTHRITIS
     Dosage: 50 MG, QWK
     Route: 058
     Dates: start: 20110511
  5. FENTANYL [Concomitant]
     Indication: PAIN
     Dosage: 25 MUG, 2 TIMES/WK
     Dates: start: 20090923
  6. FOLIC ACID [Concomitant]
     Dosage: 1 MG, QD
     Route: 048
  7. ENBREL [Suspect]
     Dosage: 50 MG, QWK
     Dates: start: 20110601

REACTIONS (1)
  - OCCIPITAL NEURALGIA [None]
